FAERS Safety Report 25069357 (Version 1)
Quarter: 2025Q1

REPORT INFORMATION
  Report Type: Spontaneous
  Country: US (occurrence: None)
  Receive Date: 20250312
  Receipt Date: 20250312
  Transmission Date: 20250409
  Serious: Yes (Hospitalization)
  Sender: FDA-CTU
  Company Number: None

PATIENT
  Age: 83 Year
  Sex: Female
  Weight: 83 kg

DRUGS (16)
  1. ENFORTUMAB [Suspect]
     Active Substance: ENFORTUMAB
     Indication: Transitional cell cancer of the renal pelvis and ureter
     Route: 042
     Dates: start: 20250206, end: 20250206
  2. PEMBROLIZUMAB [Suspect]
     Active Substance: PEMBROLIZUMAB
     Indication: Transitional cell cancer of the renal pelvis and ureter
     Route: 042
     Dates: start: 20250206, end: 20250206
  3. APIXABAN [Concomitant]
     Active Substance: APIXABAN
  4. SYMBICORT [Concomitant]
     Active Substance: BUDESONIDE\FORMOTEROL FUMARATE DIHYDRATE
  5. JARDIANCE [Concomitant]
     Active Substance: EMPAGLIFLOZIN
  6. LETROZOLE [Concomitant]
     Active Substance: LETROZOLE
  7. LEVOTHYROXINE [Concomitant]
     Active Substance: LEVOTHYROXINE
  8. Monteukast [Concomitant]
  9. potassium chloride, torsemide, selenium [Concomitant]
  10. pramipexole, albuterol, fluoxetine, diclofenac gel [Concomitant]
  11. pregabalin, melatonin, ondansetron, acetaminophen [Concomitant]
  12. ROSUVASTATIN [Concomitant]
     Active Substance: ROSUVASTATIN
  13. TRAZODONE [Concomitant]
     Active Substance: TRAZODONE HYDROCHLORIDE
  14. TORSEMIDE [Concomitant]
     Active Substance: TORSEMIDE
  15. VITAMINS [Concomitant]
     Active Substance: VITAMINS
  16. CALTRATE [Concomitant]
     Active Substance: CALCIUM CARBONATE

REACTIONS (8)
  - Extravasation [None]
  - Oedema [None]
  - Pain [None]
  - Erythema [None]
  - Skin exfoliation [None]
  - Pneumonia aspiration [None]
  - Dysphagia [None]
  - Hypernatraemia [None]

NARRATIVE: CASE EVENT DATE: 20250206
